FAERS Safety Report 9775438 (Version 1)
Quarter: 2013Q4

REPORT INFORMATION
  Report Type: Spontaneous
  Country: US (occurrence: US)
  Receive Date: 20131220
  Receipt Date: 20131220
  Transmission Date: 20140711
  Serious: No
  Sender: FDA-Public Use
  Company Number: US-GALDERMA-US13003410

PATIENT
  Age: 40 Year
  Sex: Female

DRUGS (3)
  1. MIRVASO [Suspect]
     Indication: ROSACEA
     Dosage: 0.33%
     Route: 061
     Dates: start: 20131028, end: 20131029
  2. ALGENIST GENTLE REJUVENATING THREE IN ONE [Concomitant]
     Indication: THERAPEUTIC SKIN CARE TOPICAL
     Route: 061
  3. COCONUT OIL [Concomitant]
     Indication: DRY SKIN PROPHYLAXIS
     Route: 061

REACTIONS (3)
  - Rash macular [Recovered/Resolved]
  - Feeling hot [Recovered/Resolved]
  - Inappropriate schedule of drug administration [Recovered/Resolved]
